FAERS Safety Report 6717401-9 (Version None)
Quarter: 2010Q2

REPORT INFORMATION
  Report Type: 
  Country: None (occurrence: None)
  Receive Date: 20100505
  Receipt Date: 20100422
  Transmission Date: 20101027
  Serious: Yes (Hospitalization)
  Sender: FDA-Public Use
  Company Number: 7002286

PATIENT
  Age: 44 Year
  Sex: Male

DRUGS (3)
  1. REBIF [Suspect]
     Indication: MULTIPLE SCLEROSIS
     Dosage: 44 MCG, 3 IN 1 WK, SUBCUTANEOUS
     Route: 058
     Dates: start: 20090605
  2. LOPRESSOR [Concomitant]
  3. OXYBUTYNIN CHLORIDE [Concomitant]

REACTIONS (4)
  - CONVULSION [None]
  - MULTIPLE SCLEROSIS RELAPSE [None]
  - STRESS [None]
  - URINARY TRACT INFECTION [None]
